FAERS Safety Report 7146595-9 (Version None)
Quarter: 2010Q4

REPORT INFORMATION
  Report Type: 
  Country: None (occurrence: None)
  Receive Date: 20101208
  Receipt Date: 20101115
  Transmission Date: 20110411
  Serious: No
  Sender: FDA-Public Use
  Company Number: US-PFIZER INC-2010152085

PATIENT
  Age: 41 Year
  Sex: Male
  Weight: 74.83 kg

DRUGS (2)
  1. ADVIL [Suspect]
     Indication: SINUS HEADACHE
     Dosage: 1 DF, EVERY 5 H
     Route: 048
     Dates: start: 20101113, end: 20101114
  2. ADVIL [Suspect]
     Indication: SINUS CONGESTION

REACTIONS (1)
  - DRUG EFFECT DECREASED [None]
